FAERS Safety Report 12491878 (Version 1)
Quarter: 2016Q2

REPORT INFORMATION
  Report Type: Spontaneous
  Country: US (occurrence: None)
  Receive Date: 20160622
  Receipt Date: 20160622
  Transmission Date: 20160815
  Serious: Yes (Other)
  Sender: FDA-Public Use
  Company Number: None

PATIENT
  Age: 69 Year
  Sex: Female
  Weight: 64 kg

DRUGS (12)
  1. PROGESTERONE. [Concomitant]
     Active Substance: PROGESTERONE
  2. ENOXAPARIN [Concomitant]
     Active Substance: ENOXAPARIN
  3. CEFAZOLIN [Concomitant]
     Active Substance: CEFAZOLIN
  4. FERRIC CARBOXYMALTOSE [Suspect]
     Active Substance: FERRIC CARBOXYMALTOSE
     Indication: IRON DEFICIENCY ANAEMIA
     Route: 040
     Dates: start: 20160412, end: 20160419
  5. ALBUMIN [Concomitant]
     Active Substance: ALBUMIN HUMAN
  6. PANTOPRAZOLE [Concomitant]
     Active Substance: PANTOPRAZOLE SODIUM
  7. ESTRADIOL. [Concomitant]
     Active Substance: ESTRADIOL
  8. ENALAPRILAT. [Concomitant]
     Active Substance: ENALAPRILAT
  9. SUMATRIPTAN. [Concomitant]
     Active Substance: SUMATRIPTAN
  10. HYDROMORPHONE [Concomitant]
     Active Substance: HYDROMORPHONE
  11. OSMOLITE [Concomitant]
  12. FLUCONAZOLE. [Concomitant]
     Active Substance: FLUCONAZOLE

REACTIONS (1)
  - Hypophosphataemia [None]
